FAERS Safety Report 20682589 (Version 1)
Quarter: 2022Q2

REPORT INFORMATION
  Report Type: Spontaneous
  Country: DE (occurrence: DE)
  Receive Date: 20220407
  Receipt Date: 20220407
  Transmission Date: 20220721
  Serious: Yes (Life-Threatening, Other)
  Sender: FDA-Public Use
  Company Number: DE-CELLTRION INC.-2022DE004235

PATIENT

DRUGS (39)
  1. RITUXIMAB [Suspect]
     Active Substance: RITUXIMAB
     Dosage: 375 MG/M2 OVER 3-HOURS ON DAY 1 (REPEATED DAY 21, TOTAL OF 5 CYCLES)
     Route: 064
  2. RITUXIMAB [Suspect]
     Active Substance: RITUXIMAB
     Dosage: 375 MG/M2 OVER 3-HOURS ON DAY 1 (REPEATED DAY 21, TOTAL OF 5 CYCLES)
     Route: 064
  3. RITUXIMAB [Suspect]
     Active Substance: RITUXIMAB
     Dosage: 375 MG/M2 OVER 3-HOURS ON DAY 1 (REPEATED DAY 21, TOTAL OF 5 CYCLES)
     Route: 064
  4. RITUXIMAB [Suspect]
     Active Substance: RITUXIMAB
     Dosage: 375 MG/M2 OVER 3-HOURS ON DAY 1 (REPEATED DAY 21, TOTAL OF 5 CYCLES)
     Route: 064
  5. RITUXIMAB [Suspect]
     Active Substance: RITUXIMAB
     Dosage: 375 MG/M2 OVER 3-HOURS ON DAY 1 (REPEATED DAY 21, TOTAL OF 5 CYCLES)
     Route: 064
  6. CYCLOPHOSPHAMIDE [Suspect]
     Active Substance: CYCLOPHOSPHAMIDE
     Dosage: 750 MG/M2 OVER 1-HOUR ON DAY 2 (REPEATED DAY 21, TOTAL OF 5 CYCLES)
     Route: 064
  7. CYCLOPHOSPHAMIDE [Suspect]
     Active Substance: CYCLOPHOSPHAMIDE
     Dosage: 750 MG/M2 OVER 1-HOUR ON DAY 2 (REPEATED DAY 21, TOTAL OF 5 CYCLES)
     Route: 064
  8. CYCLOPHOSPHAMIDE [Suspect]
     Active Substance: CYCLOPHOSPHAMIDE
     Dosage: 750 MG/M2 OVER 1-HOUR ON DAY 2 (REPEATED DAY 21, TOTAL OF 5 CYCLES)
     Route: 064
  9. CYCLOPHOSPHAMIDE [Suspect]
     Active Substance: CYCLOPHOSPHAMIDE
     Dosage: 750 MG/M2 OVER 1-HOUR ON DAY 2 (REPEATED DAY 21, TOTAL OF 5 CYCLES)
     Route: 064
  10. CYCLOPHOSPHAMIDE [Suspect]
     Active Substance: CYCLOPHOSPHAMIDE
     Dosage: 750 MG/M2 OVER 1-HOUR ON DAY 2 (REPEATED DAY 21, TOTAL OF 5 CYCLES)
     Route: 064
  11. DOXORUBICIN [Suspect]
     Active Substance: DOXORUBICIN
     Dosage: 50 MG/M2 OVER 30-MINUTES ON DAY 2 (REPEATED DAY 21, TOTAL OF 5 CYCLES)
     Route: 064
  12. DOXORUBICIN [Suspect]
     Active Substance: DOXORUBICIN
     Dosage: 50 MG/M2 OVER 30-MINUTES ON DAY 2 (REPEATED DAY 21, TOTAL OF 5 CYCLES)
     Route: 064
  13. DOXORUBICIN [Suspect]
     Active Substance: DOXORUBICIN
     Dosage: 50 MG/M2 OVER 30-MINUTES ON DAY 2 (REPEATED DAY 21, TOTAL OF 5 CYCLES)
     Route: 064
  14. DOXORUBICIN [Suspect]
     Active Substance: DOXORUBICIN
     Dosage: 50 MG/M2 OVER 30-MINUTES ON DAY 2 (REPEATED DAY 21, TOTAL OF 5 CYCLES)
     Route: 064
  15. DOXORUBICIN [Suspect]
     Active Substance: DOXORUBICIN
     Dosage: 50 MG/M2 OVER 30-MINUTES ON DAY 2 (REPEATED DAY 21, TOTAL OF 5 CYCLES)
     Route: 064
  16. VINCRISTINE [Suspect]
     Active Substance: VINCRISTINE
     Dosage: 2 MG ON DAY 2 (REPEATED DAY 21, TOTAL OF 5 CYCLES)
     Route: 064
  17. VINCRISTINE [Suspect]
     Active Substance: VINCRISTINE
     Dosage: 2 MG ON DAY 2 (REPEATED DAY 21, TOTAL OF 5 CYCLES)
     Route: 064
  18. VINCRISTINE [Suspect]
     Active Substance: VINCRISTINE
     Dosage: 2 MG ON DAY 2 (REPEATED DAY 21, TOTAL OF 5 CYCLES)
     Route: 064
  19. VINCRISTINE [Suspect]
     Active Substance: VINCRISTINE
     Dosage: 2 MG ON DAY 2 (REPEATED DAY 21, TOTAL OF 5 CYCLES)
     Route: 064
  20. VINCRISTINE [Suspect]
     Active Substance: VINCRISTINE
     Dosage: 2 MG ON DAY 2 (REPEATED DAY 21, TOTAL OF 5 CYCLES)
     Route: 064
  21. ETOPOSIDE [Suspect]
     Active Substance: ETOPOSIDE
     Dosage: 100 MG/M2 1-HOUR ON DAYS 2-4 (REPEATED DAY 21, TOTAL OF 5 CYCLES)
     Route: 064
  22. ETOPOSIDE [Suspect]
     Active Substance: ETOPOSIDE
     Dosage: 100 MG/M2 1-HOUR ON DAYS 2-4 (REPEATED DAY 21, TOTAL OF 5 CYCLES)
     Route: 064
  23. ETOPOSIDE [Suspect]
     Active Substance: ETOPOSIDE
     Dosage: 100 MG/M2 1-HOUR ON DAYS 2-4 (REPEATED DAY 21, TOTAL OF 5 CYCLES)
     Route: 064
  24. ETOPOSIDE [Suspect]
     Active Substance: ETOPOSIDE
     Dosage: 100 MG/M2 1-HOUR ON DAYS 2-4 (REPEATED DAY 21, TOTAL OF 5 CYCLES)
     Route: 064
  25. ETOPOSIDE [Suspect]
     Active Substance: ETOPOSIDE
     Dosage: 100 MG/M2 1-HOUR ON DAYS 2-4 (REPEATED DAY 21, TOTAL OF 5 CYCLES)
     Route: 064
  26. PREDNISOLONE [Suspect]
     Active Substance: PREDNISOLONE
     Dosage: 100 MG ORALLY ON DAYS 2-5 (REPEATED DAY 21, TOTAL OF 5 CYCLES)
     Route: 064
  27. PREDNISOLONE [Suspect]
     Active Substance: PREDNISOLONE
     Dosage: 100 MG ORALLY ON DAYS 2-5 (REPEATED DAY 21, TOTAL OF 5 CYCLES)
     Route: 064
  28. PREDNISOLONE [Suspect]
     Active Substance: PREDNISOLONE
     Dosage: 100 MG ORALLY ON DAYS 2-5 (REPEATED DAY 21, TOTAL OF 5 CYCLES)
     Route: 064
  29. PREDNISOLONE [Suspect]
     Active Substance: PREDNISOLONE
     Dosage: 100 MG ORALLY ON DAYS 2-5 (REPEATED DAY 21, TOTAL OF 5 CYCLES)
     Route: 064
  30. PREDNISOLONE [Suspect]
     Active Substance: PREDNISOLONE
     Dosage: 100 MG ORALLY ON DAYS 2-5 (REPEATED DAY 21, TOTAL OF 5 CYCLES)
     Route: 064
  31. DEXAMETHASONE [Suspect]
     Active Substance: DEXAMETHASONE
     Dosage: 4 MG  ON DAYS 2 AND 6
     Route: 064
  32. FILGRASTIM [Suspect]
     Active Substance: FILGRASTIM
     Dosage: 10 MICROGRAM/KILOGRAM/DAY ON DAYS 6-11
     Route: 064
  33. MESNA [Suspect]
     Active Substance: MESNA
     Dosage: 200 MG/M2 AT 0, 4 AND 8 HOURS AFTER CPA DAY 2
     Route: 064
  34. CYTARABINE [Concomitant]
     Active Substance: CYTARABINE
     Dosage: 150 MG/M2 OVER 1-HOUR EVERY 12 HOURS ON DAYS 2-6 (REPEATED DAY 21, TOTAL OF 5 CYCLES)
     Route: 064
  35. CYTARABINE [Concomitant]
     Active Substance: CYTARABINE
     Dosage: 150 MG/M2 OVER 1-HOUR EVERY 12 HOURS ON DAYS 2-6 (REPEATED DAY 21, TOTAL OF 5 CYCLES)
     Route: 064
  36. CYTARABINE [Concomitant]
     Active Substance: CYTARABINE
     Dosage: 150 MG/M2 OVER 1-HOUR EVERY 12 HOURS ON DAYS 2-6 (REPEATED DAY 21, TOTAL OF 5 CYCLES)
     Route: 064
  37. CYTARABINE [Concomitant]
     Active Substance: CYTARABINE
     Dosage: 150 MG/M2 OVER 1-HOUR EVERY 12 HOURS ON DAYS 2-6 (REPEATED DAY 21, TOTAL OF 5 CYCLES)
     Route: 064
  38. CYTARABINE [Concomitant]
     Active Substance: CYTARABINE
     Dosage: 150 MG/M2 OVER 1-HOUR EVERY 12 HOURS ON DAYS 2-6 (REPEATED DAY 21, TOTAL OF 5 CYCLES)
     Route: 064
  39. CYTARABINE [Concomitant]
     Active Substance: CYTARABINE
     Dosage: 40 MG ON DAYS 2 AND 6
     Route: 064

REACTIONS (10)
  - Foetal growth restriction [Unknown]
  - Premature baby [Unknown]
  - Low birth weight baby [Recovered/Resolved]
  - Hypogammaglobulinaemia [Not Recovered/Not Resolved]
  - Bacterial infection [Recovered/Resolved]
  - Infection [Recovered/Resolved]
  - Vaccine induced antibody absent [Unknown]
  - Plasmablast count increased [Unknown]
  - B-lymphocyte count decreased [Not Recovered/Not Resolved]
  - Foetal exposure during pregnancy [Unknown]
